FAERS Safety Report 6435780-7 (Version None)
Quarter: 2009Q4

REPORT INFORMATION
  Report Type: 
  Country: None (occurrence: None)
  Receive Date: 20091110
  Receipt Date: 20080528
  Transmission Date: 20100525
  Serious: No
  Sender: FDA-Public Use
  Company Number: AECAN200800125

PATIENT
  Age: 46 Year
  Sex: Female
  Weight: 86.2 kg

DRUGS (7)
  1. GAMUNEX [Suspect]
     Indication: IDIOPATHIC THROMBOCYTOPENIC PURPURA
     Dosage: S85 GM;1X;IV
     Route: 042
     Dates: start: 20080425, end: 20080515
  2. GAMUNEX [Suspect]
  3. PREDNISONE [Concomitant]
  4. TYLENOL (CAPLET) [Concomitant]
  5. VITAMIN D [Concomitant]
  6. FOSAMAX [Concomitant]
  7. CALCIUM CARBONATE [Concomitant]

REACTIONS (4)
  - BLOOD CREATININE INCREASED [None]
  - HAEMOLYTIC ANAEMIA [None]
  - JAUNDICE [None]
  - RETICULOCYTOSIS [None]
